FAERS Safety Report 8588670-8 (Version None)
Quarter: 2012Q3

REPORT INFORMATION
  Report Type: 
  Country: None (occurrence: None)
  Receive Date: 20120813
  Receipt Date: 20120801
  Transmission Date: 20120928
  Serious: Yes (Hospitalization)
  Sender: FDA-Public Use
  Company Number: US-BAYER-2012-078996

PATIENT
  Age: 37 Year
  Sex: Female
  Weight: 53.968 kg

DRUGS (5)
  1. DIFLORASONE DIACETATE [Concomitant]
     Dosage: UNK
     Dates: start: 20050811
  2. TYLENOL [Concomitant]
  3. YASMIN [Suspect]
     Dosage: UNK
     Dates: start: 20050501, end: 20050816
  4. IBUPROFEN [Concomitant]
     Indication: GROIN PAIN
  5. PREVACID [Concomitant]

REACTIONS (1)
  - DEEP VEIN THROMBOSIS [None]
